FAERS Safety Report 8604847-7 (Version None)
Quarter: 2012Q3

REPORT INFORMATION
  Report Type: 
  Country: None (occurrence: None)
  Receive Date: 20120820
  Receipt Date: 20120808
  Transmission Date: 20120928
  Serious: Yes (Other)
  Sender: FDA-Public Use
  Company Number: US-JNJFOC-20120602044

PATIENT
  Sex: Male
  Weight: 76 kg

DRUGS (3)
  1. REMICADE [Suspect]
     Indication: CROHN'S DISEASE
     Route: 042
     Dates: start: 20091106, end: 20110718
  2. METHOTREXATE [Concomitant]
     Indication: CROHN'S DISEASE
     Route: 065
     Dates: start: 20101212, end: 20110718
  3. REMICADE [Suspect]
     Indication: ANAL FISTULA
     Route: 042
     Dates: start: 20091106, end: 20110718

REACTIONS (1)
  - EPSTEIN-BARR VIRUS INFECTION [None]
